FAERS Safety Report 10874442 (Version 1)
Quarter: 2015Q1

REPORT INFORMATION
  Report Type: Spontaneous
  Country: US (occurrence: US)
  Receive Date: 20150227
  Receipt Date: 20150227
  Transmission Date: 20150721
  Serious: Yes (Other)
  Sender: FDA-Public Use
  Company Number: US-AMGEN-USASP2015015665

PATIENT

DRUGS (5)
  1. CYTOXAN [Concomitant]
     Active Substance: CYCLOPHOSPHAMIDE
     Dosage: UNK
  2. XGEVA [Suspect]
     Active Substance: DENOSUMAB
     Indication: PRODUCT USED FOR UNKNOWN INDICATION
     Dosage: UNK UNK, QMO
     Route: 065
  3. TAXOL [Concomitant]
     Active Substance: PACLITAXEL
     Dosage: UNK
  4. NEULASTA [Suspect]
     Active Substance: PEGFILGRASTIM
     Indication: PRODUCT USED FOR UNKNOWN INDICATION
     Dosage: UNK
     Route: 065
  5. ADRIAMYCIN [Concomitant]
     Active Substance: DOXORUBICIN HYDROCHLORIDE
     Dosage: UNK

REACTIONS (11)
  - Tumour flare [Unknown]
  - Musculoskeletal chest pain [Unknown]
  - Sleep disorder due to general medical condition, insomnia type [Unknown]
  - Vomiting [Unknown]
  - Metastases to bone [Unknown]
  - Impaired work ability [Unknown]
  - Influenza like illness [Unknown]
  - Dysgeusia [Unknown]
  - Swollen tongue [Unknown]
  - Mobility decreased [Unknown]
  - Alopecia [Unknown]
